FAERS Safety Report 10516683 (Version 1)
Quarter: 2014Q4

REPORT INFORMATION
  Report Type: Spontaneous
  Country: US (occurrence: None)
  Receive Date: 20141003
  Receipt Date: 20141003
  Transmission Date: 20150528
  Serious: Yes (Hospitalization)
  Sender: FDA-Public Use
  Company Number: 1351414

PATIENT
  Age: 40 Year
  Sex: Male

DRUGS (2)
  1. PEGASYS [Suspect]
     Active Substance: PEGINTERFERON ALFA-2A
     Indication: CHRONIC HEPATITIS C
     Route: 058
     Dates: start: 20140118
  2. COPEGUS [Concomitant]
     Active Substance: RIBAVIRIN

REACTIONS (4)
  - Hallucination, visual [None]
  - Hallucination, auditory [None]
  - Feeling hot [None]
  - Heart rate increased [None]
